FAERS Safety Report 13399535 (Version 2)
Quarter: 2017Q2

REPORT INFORMATION
  Report Type: Spontaneous
  Country: US (occurrence: US)
  Receive Date: 20170404
  Receipt Date: 20170428
  Transmission Date: 20170830
  Serious: Yes (Other)
  Sender: FDA-Public Use
  Company Number: US-009507513-1703USA012431

PATIENT
  Age: 60 Year
  Sex: Female
  Weight: 77.1 kg

DRUGS (3)
  1. ZOSTAVAX [Suspect]
     Active Substance: VARICELLA-ZOSTER VIRUS STRAIN OKA/MERCK LIVE ANTIGEN
     Indication: PROPHYLAXIS
     Route: 058
     Dates: start: 20170323, end: 20170323
  2. STERILE DILUENT [Suspect]
     Active Substance: WATER
     Dosage: UNK,FIRST DOSE, ONCE
     Route: 058
     Dates: start: 20170323, end: 20170323
  3. HYDROCHLOROTHIAZIDE. [Concomitant]
     Active Substance: HYDROCHLOROTHIAZIDE
     Dosage: UNK

REACTIONS (6)
  - Dyspnoea [Recovered/Resolved]
  - Throat tightness [Recovered/Resolved]
  - Injection site urticaria [Recovered/Resolved]
  - Chest discomfort [Recovered/Resolved]
  - Pruritus generalised [Recovered/Resolved]
  - Injection site pruritus [Recovered/Resolved]

NARRATIVE: CASE EVENT DATE: 20170324
